FAERS Safety Report 8566580-X (Version None)
Quarter: 2012Q3

REPORT INFORMATION
  Report Type: 
  Country: None (occurrence: None)
  Receive Date: 20120803
  Receipt Date: 20111026
  Transmission Date: 20120928
  Serious: No
  Sender: FDA-Public Use
  Company Number: US-ABBOTT-11P-163-0869355-00

PATIENT
  Sex: Male
  Weight: 131.66 kg

DRUGS (18)
  1. NEXIUM [Concomitant]
     Indication: GASTROOESOPHAGEAL REFLUX DISEASE
  2. TRAMADOL HCL [Concomitant]
     Indication: BACK PAIN
  3. ALLOPURINOL [Concomitant]
     Indication: GOUT
  4. HYDRALAZINE HCL [Concomitant]
     Indication: HYPERTENSION
  5. PADAKA [Concomitant]
     Indication: ANTICOAGULANT THERAPY
  6. ASPIRIN [Concomitant]
     Indication: ANTICOAGULANT THERAPY
  7. AMLODIPINE [Concomitant]
     Indication: ATRIAL FIBRILLATION
  8. LISINOPRIL [Concomitant]
     Indication: HYPERTENSION
  9. SPIRONOLACTONE [Concomitant]
     Indication: FLUID RETENTION
  10. ROPINIRONE HCL [Concomitant]
     Indication: MUSCLE SPASMS
  11. AVALIDE [Concomitant]
     Indication: ATRIAL FIBRILLATION
  12. CARDIVIDOL [Concomitant]
     Indication: ATRIAL FIBRILLATION
  13. KLOR-CHON [Concomitant]
     Indication: MINERAL SUPPLEMENTATION
  14. LIPITOR [Concomitant]
     Indication: BLOOD CHOLESTEROL INCREASED
  15. LYRICA [Concomitant]
     Indication: PAIN
  16. NIASPAN [Suspect]
     Indication: BLOOD CHOLESTEROL INCREASED
     Dates: start: 20090101
  17. VITAMIN D [Concomitant]
     Indication: VITAMIN D DEFICIENCY
  18. METHOCARBAMOL [Concomitant]
     Indication: MUSCLE SPASMS

REACTIONS (1)
  - FLUSHING [None]
